FAERS Safety Report 23915534 (Version 1)
Quarter: 2024Q2

REPORT INFORMATION
  Report Type: Spontaneous
  Country: US (occurrence: US)
  Receive Date: 20240529
  Receipt Date: 20240529
  Transmission Date: 20240716
  Serious: Yes (Other)
  Sender: FDA-Public Use
  Company Number: US-Calliditas-2024CAL00856

PATIENT
  Age: 56 Year
  Sex: Female

DRUGS (1)
  1. TARPEYO [Suspect]
     Active Substance: BUDESONIDE
     Indication: IgA nephropathy
     Route: 048
     Dates: start: 20231115

REACTIONS (4)
  - Lower respiratory tract infection [Unknown]
  - Epistaxis [Unknown]
  - White blood cell count increased [Unknown]
  - Hyperaesthesia teeth [Unknown]
